FAERS Safety Report 7978622-0 (Version None)
Quarter: 2011Q4

REPORT INFORMATION
  Report Type: 
  Country: None (occurrence: None)
  Receive Date: 20111206
  Receipt Date: 20111129
  Transmission Date: 20120403
  Serious: Yes (Hospitalization)
  Sender: FDA-Public Use
  Company Number: 2011SP049419

PATIENT
  Age: 87 Year
  Sex: Female

DRUGS (8)
  1. DESLORATADINE [Suspect]
     Indication: PRODUCT USED FOR UNKNOWN INDICATION
     Dosage: PO
     Route: 048
     Dates: start: 20110707, end: 20110709
  2. LEVOTHYROXINE SODIUM [Concomitant]
  3. LASIX [Concomitant]
  4. ACETAMINOPHEN [Concomitant]
  5. AMOXICILLIN [Suspect]
     Indication: LUNG DISORDER
     Dosage: PO
     Route: 048
     Dates: start: 20110705, end: 20110707
  6. CLARITHROMYCIN [Suspect]
     Indication: PRODUCT USED FOR UNKNOWN INDICATION
     Dosage: PO
     Route: 048
     Dates: start: 20110707, end: 20110709
  7. NEXIUM [Concomitant]
  8. EXELON [Concomitant]

REACTIONS (2)
  - ACUTE GENERALISED EXANTHEMATOUS PUSTULOSIS [None]
  - OEDEMA [None]
